FAERS Safety Report 15211908 (Version 1)
Quarter: 2018Q3

REPORT INFORMATION
  Report Type: Spontaneous
  Country: US (occurrence: US)
  Receive Date: 20180702
  Receipt Date: 20180702
  Transmission Date: 20181010
  Serious: Yes (Disabling)
  Sender: FDA-Public Use
  Company Number: None

PATIENT
  Age: 42 Year
  Sex: Male

DRUGS (4)
  1. MULTIVITAMINS [Concomitant]
     Active Substance: VITAMINS
  2. RESVERATROL [Concomitant]
     Active Substance: DIETARY SUPPLEMENT\RESVERATROL
  3. COQ ENZYME [Concomitant]
  4. IRBESARTAN. [Suspect]
     Active Substance: IRBESARTAN
     Indication: BLOOD PRESSURE MEASUREMENT
     Dosage: ?          QUANTITY:69 TABLET(S);?
     Route: 048
     Dates: start: 20160630, end: 20160909

REACTIONS (12)
  - Chromaturia [None]
  - Sprue-like enteropathy [None]
  - Muscle fatigue [None]
  - Flatulence [None]
  - Myalgia [None]
  - Abdominal distension [None]
  - Dysbacteriosis [None]
  - Thirst [None]
  - Feeling abnormal [None]
  - Diarrhoea [None]
  - Rhabdomyolysis [None]
  - Dry eye [None]

NARRATIVE: CASE EVENT DATE: 20160915
